FAERS Safety Report 6222226-7 (Version None)
Quarter: 2009Q2

REPORT INFORMATION
  Report Type: 
  Country: None (occurrence: None)
  Receive Date: 20090611
  Receipt Date: 20090602
  Transmission Date: 20091009
  Serious: Yes (Other)
  Sender: FDA-Public Use
  Company Number: PHHY2009BR21765

PATIENT
  Sex: Female
  Weight: 98 kg

DRUGS (4)
  1. TEGRETOL [Suspect]
     Indication: CONVULSION
     Dosage: 1 DF, BID
     Route: 048
     Dates: start: 20040101
  2. VASOPRIL [Concomitant]
     Indication: HYPERTENSION
     Dosage: 10 MG, 2 TABLETS DAILY
     Route: 048
     Dates: start: 20050101
  3. MODURETIC 5-50 [Concomitant]
     Indication: HYPERTENSION
     Dosage: 1 TABLET MANE
     Route: 048
     Dates: start: 20050101
  4. VALPROIC ACID SYRUP [Concomitant]
     Dosage: 1 TABLET /DAY
     Route: 048
     Dates: start: 20080301

REACTIONS (12)
  - ABDOMINAL PAIN UPPER [None]
  - ACARODERMATITIS [None]
  - AMNESIA [None]
  - CEREBELLAR SYNDROME [None]
  - CONVULSION [None]
  - DAYDREAMING [None]
  - EPILEPTIC AURA [None]
  - FEELING ABNORMAL [None]
  - FUNGAL INFECTION [None]
  - PETIT MAL EPILEPSY [None]
  - PRURITUS GENERALISED [None]
  - SOMNOLENCE [None]
